FAERS Safety Report 16491531 (Version 1)
Quarter: 2019Q2

REPORT INFORMATION
  Report Type: Spontaneous
  Country: US (occurrence: US)
  Receive Date: 20190628
  Receipt Date: 20190628
  Transmission Date: 20190711
  Serious: No
  Sender: FDA-Public Use
  Company Number: US-JIANGSU HENGRUI MEDICINE CO., LTD.-2069751

PATIENT
  Age: 19 Year
  Sex: Female

DRUGS (2)
  1. CYCLOPHOSPHAMIDE FOR INJECTION USP, 500 MG, 1 G AND 2 G PER SINGLE-DOS [Suspect]
     Active Substance: CYCLOPHOSPHAMIDE
     Indication: KAPOSI^S SARCOMA
  2. TRAMETINIB [Concomitant]
     Active Substance: TRAMETINIB

REACTIONS (1)
  - Disease progression [Unknown]
